FAERS Safety Report 13578537 (Version 1)
Quarter: 2017Q2

REPORT INFORMATION
  Report Type: Spontaneous
  Country: NL (occurrence: NL)
  Receive Date: 20170524
  Receipt Date: 20170524
  Transmission Date: 20170830
  Serious: Yes (Other)
  Sender: FDA-Public Use
  Company Number: NL-BAUSCH-BL-2017-016890

PATIENT
  Age: 51 Year
  Sex: Male

DRUGS (7)
  1. BENZYLPENICILLIN [Concomitant]
     Active Substance: PENICILLIN G
     Dosage: 20 MILLION UNITS ON DAY 5 TO 21; 8-HOUR CONTINUOUS INFUSION
  2. BENZYLPENICILLIN [Concomitant]
     Active Substance: PENICILLIN G
     Indication: AMYOTROPHIC LATERAL SCLEROSIS
     Dosage: 1 MILLION UNITS ON DAY 1; 8-HOUR CONTINUOUS INFUSION
  3. BENZYLPENICILLIN [Concomitant]
     Active Substance: PENICILLIN G
     Dosage: 3 MILLION UNITS ON DAY 2; 8-HOUR CONTINUOUS INFUSION
  4. HYDROCORTISONE. [Suspect]
     Active Substance: HYDROCORTISONE
     Indication: AMYOTROPHIC LATERAL SCLEROSIS
     Dosage: 8-HOUR CONTINUOUS INFUSION ON EACH TREATMENT DAY
     Route: 065
  5. BENZYLPENICILLIN [Concomitant]
     Active Substance: PENICILLIN G
     Dosage: 5 MILLION UNITS ON DAY 3; 8-HOUR CONTINUOUS INFUSION
  6. BENZYLPENICILLIN [Concomitant]
     Active Substance: PENICILLIN G
     Dosage: 10 MILLION UNITS ON DAY 4; 8-HOUR CONTINUOUS INFUSION
  7. RILUZOLE. [Concomitant]
     Active Substance: RILUZOLE
     Indication: AMYOTROPHIC LATERAL SCLEROSIS

REACTIONS (2)
  - Headache [Recovered/Resolved]
  - Blood pressure increased [Recovered/Resolved]
